FAERS Safety Report 9698231 (Version 1)
Quarter: 2013Q4

REPORT INFORMATION
  Report Type: Spontaneous
  Country: US (occurrence: US)
  Receive Date: 20131120
  Receipt Date: 20131120
  Transmission Date: 20140711
  Serious: No
  Sender: FDA-Public Use
  Company Number: US-ENDO PHARMACEUTICALS INC.-OXYB20120009

PATIENT
  Age: 62 Year
  Sex: Female

DRUGS (2)
  1. OXYBUTYNIN CHLORIDE [Suspect]
     Indication: NOCTURIA
     Route: 048
     Dates: start: 201204
  2. GELNIQUE [Suspect]
     Indication: NOCTURIA
     Route: 062
     Dates: start: 201204, end: 201204

REACTIONS (4)
  - Spinal column stenosis [Unknown]
  - Condition aggravated [Unknown]
  - Pain [Unknown]
  - Drug ineffective [Not Recovered/Not Resolved]
